FAERS Safety Report 11491831 (Version 1)
Quarter: 2015Q3

REPORT INFORMATION
  Report Type: Spontaneous
  Country: US (occurrence: US)
  Receive Date: 20150910
  Receipt Date: 20150910
  Transmission Date: 20151125
  Serious: No
  Sender: FDA-Public Use
  Company Number: US-TEVA-592298USA

PATIENT
  Sex: Female
  Weight: 61.29 kg

DRUGS (5)
  1. COPAXONE [Suspect]
     Active Substance: GLATIRAMER ACETATE
     Indication: MULTIPLE SCLEROSIS
     Dosage: UNKNOWN FORM STRENGTH
     Dates: start: 201506
  2. MACRODANTIN [Concomitant]
     Active Substance: NITROFURANTOIN
     Route: 065
  3. AMPYRA [Concomitant]
     Active Substance: DALFAMPRIDINE
     Route: 065
  4. BACLOFEN. [Concomitant]
     Active Substance: BACLOFEN
     Route: 065
  5. SINGULAIR [Concomitant]
     Active Substance: MONTELUKAST SODIUM
     Route: 065

REACTIONS (5)
  - Injection site erythema [Unknown]
  - Injection site reaction [Unknown]
  - Injection site rash [Unknown]
  - Injection site warmth [Unknown]
  - Injection site pruritus [Unknown]
